FAERS Safety Report 11345048 (Version 3)
Quarter: 2015Q3

REPORT INFORMATION
  Report Type: Report from Study
  Country: JP (occurrence: JP)
  Receive Date: 20150806
  Receipt Date: 20150911
  Transmission Date: 20151125
  Serious: Yes (Hospitalization, Other)
  Sender: FDA-Public Use
  Company Number: JP-BRISTOL-MYERS SQUIBB COMPANY-BMS-2015-050594

PATIENT
  Age: 73 Year
  Sex: Female
  Weight: 49 kg

DRUGS (19)
  1. SALOBEL [Concomitant]
     Active Substance: ALLOPURINOL
     Indication: HYPERURICAEMIA
     Dosage: 100 MG, QD
     Route: 048
     Dates: end: 20140805
  2. APIXABAN [Suspect]
     Active Substance: APIXABAN
     Indication: CEREBROVASCULAR ACCIDENT PROPHYLAXIS
     Dosage: 5 MG, BID
     Route: 048
     Dates: start: 20140709
  3. FEBURIC [Concomitant]
     Active Substance: FEBUXOSTAT
     Dosage: 20 MG, QD
     Route: 048
     Dates: start: 20141021
  4. CALONAL [Concomitant]
     Active Substance: ACETAMINOPHEN
     Indication: PRODUCT USED FOR UNKNOWN INDICATION
     Dosage: 600 MG, QD
     Route: 048
     Dates: start: 20141107, end: 20141202
  5. NAUZELIN [Concomitant]
     Active Substance: DOMPERIDONE
     Indication: NAUSEA
     Dosage: 60 MG, PRN
     Route: 065
     Dates: start: 20141114, end: 20141117
  6. APIXABAN [Suspect]
     Active Substance: APIXABAN
     Dosage: 5 MG, BID
     Route: 048
     Dates: start: 20141020
  7. MICARDIS [Concomitant]
     Active Substance: TELMISARTAN
     Dosage: 40 MG, QD
     Route: 048
     Dates: start: 20141202
  8. NOVO HEPARIN [Concomitant]
     Active Substance: HEPARIN SODIUM
     Indication: PROPHYLAXIS
     Dosage: 1000 UNIT, QD
     Route: 042
     Dates: start: 20141015, end: 20141021
  9. APIXABAN [Suspect]
     Active Substance: APIXABAN
     Dosage: 5 MG, BID
     Route: 048
     Dates: start: 20141102
  10. HALFDIGOXIN [Concomitant]
     Active Substance: DIGOXIN
     Indication: THROMBOSIS PROPHYLAXIS
     Dosage: 0.125 MG, QD
     Route: 048
  11. DIART [Concomitant]
     Active Substance: AZOSEMIDE
     Indication: HYPERTENSION
     Dosage: 30 MG, QD
     Route: 048
     Dates: start: 20140709, end: 20141125
  12. DIART [Concomitant]
     Active Substance: AZOSEMIDE
     Dosage: 30 MG, QD
     Route: 048
     Dates: start: 20150204
  13. FEBURIC [Concomitant]
     Active Substance: FEBUXOSTAT
     Indication: HYPERURICAEMIA
     Dosage: 20 MG, QD
     Route: 048
     Dates: start: 20140806, end: 20141014
  14. TAKEPRON [Concomitant]
     Active Substance: LANSOPRAZOLE
     Indication: PROPHYLAXIS
     Dosage: 15 MG, QD
     Route: 048
     Dates: start: 20141024, end: 20141202
  15. LUNESTA [Concomitant]
     Active Substance: ESZOPICLONE
     Indication: INSOMNIA
     Dosage: 2 MG, PRN
     Route: 048
     Dates: start: 20141107, end: 20141117
  16. APIXABAN [Suspect]
     Active Substance: APIXABAN
     Dosage: 5 MG, BID
     Route: 048
     Dates: start: 20141117
  17. MICARDIS [Concomitant]
     Active Substance: TELMISARTAN
     Indication: HYPERTENSION
     Dosage: 40 MG, QD
     Route: 048
     Dates: end: 20141026
  18. CELECOX [Concomitant]
     Active Substance: CELECOXIB
     Indication: PAIN
     Dosage: 200 MG, PRN
     Route: 048
     Dates: start: 20141107, end: 20141202
  19. MERICUT [Concomitant]
     Indication: PAIN
     Dosage: 25 MG, PRN
     Route: 065
     Dates: start: 20141114, end: 20141117

REACTIONS (6)
  - Post procedural haemorrhage [Recovering/Resolving]
  - Laparotomy [Unknown]
  - Oedema peripheral [Recovered/Resolved]
  - Cholecystectomy [Unknown]
  - Pancreatitis acute [Recovered/Resolved]
  - Bile duct stone [Recovering/Resolving]

NARRATIVE: CASE EVENT DATE: 20141014
